FAERS Safety Report 21713726 (Version 4)
Quarter: 2023Q1

REPORT INFORMATION
  Report Type: Spontaneous
  Country: US (occurrence: US)
  Receive Date: 20221212
  Receipt Date: 20230113
  Transmission Date: 20230418
  Serious: No
  Sender: FDA-Public Use
  Company Number: US-PFIZER INC-2021245121

PATIENT
  Age: 79 Year
  Sex: Male
  Weight: 77.11 kg

DRUGS (2)
  1. VYNDAMAX [Suspect]
     Active Substance: TAFAMIDIS
     Indication: Cardiac amyloidosis
     Dosage: 61 MG
  2. VYNDAMAX [Suspect]
     Active Substance: TAFAMIDIS
     Dosage: 61 MG, 1X/DAY (ONE CAPSULE A DAY, SWALLOWS CAPSULE WITH WATER)
     Route: 048

REACTIONS (1)
  - Therapeutic product effect incomplete [Unknown]
